FAERS Safety Report 8974202 (Version 1)
Quarter: 2012Q4

REPORT INFORMATION
  Report Type: 
  Country: US (occurrence: None)
  Receive Date: 20121214
  Receipt Date: 20121214
  Transmission Date: 20130627
  Serious: Yes (Hospitalization)
  Sender: FDA-Public Use
  Company Number: 2012ST000749

PATIENT
  Age: 82 Year
  Sex: Female

DRUGS (6)
  1. MATULANE CAPSULES [Suspect]
     Indication: NON-HODGKIN^S LYMPHOMA
     Route: 048
     Dates: start: 20121114, end: 201211
  2. ETOPOSIDE [Concomitant]
  3. CYCLOPHOSPHAMIDE [Concomitant]
  4. DILTIAZEM [Concomitant]
  5. COREG [Concomitant]
  6. LASIX [Concomitant]

REACTIONS (3)
  - Pancytopenia [None]
  - Cardiac failure congestive [None]
  - Condition aggravated [None]
